FAERS Safety Report 7403750-8 (Version None)
Quarter: 2011Q2

REPORT INFORMATION
  Report Type: 
  Country: None (occurrence: None)
  Receive Date: 20110408
  Receipt Date: 20110329
  Transmission Date: 20111010
  Serious: Yes (Other)
  Sender: FDA-Public Use
  Company Number: DK-ELI_LILLY_AND_COMPANY-DK201103008394

PATIENT
  Sex: Female

DRUGS (5)
  1. MELATONIN [Concomitant]
  2. SAROTEN [Concomitant]
  3. ANTABUSE [Concomitant]
     Dosage: 400 MG, 2/W
  4. PINEX [Concomitant]
  5. ZYPREXA [Suspect]
     Dosage: 25 MG, QD
     Route: 048

REACTIONS (3)
  - OVERDOSE [None]
  - FACTOR X DEFICIENCY [None]
  - HAEMATOMA [None]
